FAERS Safety Report 8457462-2 (Version None)
Quarter: 2012Q2

REPORT INFORMATION
  Report Type: 
  Country: None (occurrence: None)
  Receive Date: 20120621
  Receipt Date: 20120620
  Transmission Date: 20120825
  Serious: Yes (Other)
  Sender: FDA-Public Use
  Company Number: ES-ABBOTT-12P-144-0945946-00

PATIENT

DRUGS (1)
  1. ADALIMUMAB [Suspect]
     Indication: PSORIASIS

REACTIONS (1)
  - PROSTATE CANCER [None]
